FAERS Safety Report 17307365 (Version 1)
Quarter: 2020Q1

REPORT INFORMATION
  Report Type: Spontaneous
  Country: SE (occurrence: SE)
  Receive Date: 20200123
  Receipt Date: 20200123
  Transmission Date: 20200409
  Serious: Yes (Hospitalization)
  Sender: FDA-Public Use
  Company Number: SE-MYLANLABS-2020M1007225

PATIENT
  Age: 31 Year
  Sex: Male

DRUGS (2)
  1. LERGIGAN (PROMETHAZINE) [Suspect]
     Active Substance: PROMETHAZINE HYDROCHLORIDE
     Indication: PRODUCT USED FOR UNKNOWN INDICATION
     Dosage: 750 MILLIGRAM
     Route: 048
     Dates: start: 20180626, end: 20180626
  2. MIRTAZAPINE. [Suspect]
     Active Substance: MIRTAZAPINE
     Indication: PRODUCT USED FOR UNKNOWN INDICATION
     Dosage: 150 MILLIGRAM
     Route: 048
     Dates: start: 20180626, end: 20180626

REACTIONS (4)
  - Consciousness fluctuating [Unknown]
  - Intentional self-injury [Unknown]
  - Intentional overdose [Unknown]
  - Anxiety [Unknown]

NARRATIVE: CASE EVENT DATE: 20180626
